FAERS Safety Report 11118300 (Version 2)
Quarter: 2015Q2

REPORT INFORMATION
  Report Type: Spontaneous
  Country: CN (occurrence: CN)
  Receive Date: 20150518
  Receipt Date: 20150609
  Transmission Date: 20150821
  Serious: Yes (Hospitalization, Other)
  Sender: FDA-Public Use
  Company Number: CN-JNJFOC-20150508372

PATIENT
  Age: 18 Month
  Sex: Male

DRUGS (2)
  1. MOTRIN INFANTS [Suspect]
     Active Substance: IBUPROFEN
     Route: 048
  2. MOTRIN INFANTS [Suspect]
     Active Substance: IBUPROFEN
     Indication: PYREXIA
     Route: 048
     Dates: start: 20150502, end: 20150502

REACTIONS (1)
  - Seizure [Recovered/Resolved]

NARRATIVE: CASE EVENT DATE: 20150502
